FAERS Safety Report 8042976-X (Version None)
Quarter: 2012Q1

REPORT INFORMATION
  Report Type: 
  Country: None (occurrence: None)
  Receive Date: 20120112
  Receipt Date: 20120103
  Transmission Date: 20120608
  Serious: Yes (Hospitalization)
  Sender: FDA-Public Use
  Company Number: PHHY2011FR34636

PATIENT
  Sex: Female

DRUGS (6)
  1. IRBESARTAN [Concomitant]
     Indication: HYPERTENSION
     Dosage: 75 MG, DAILY
  2. TANAKAN [Concomitant]
     Dosage: 40 MG, BID
  3. EXELON [Suspect]
     Indication: DEMENTIA ALZHEIMER'S TYPE
     Dosage: 4.6 MG/24H
     Route: 062
     Dates: start: 20110218, end: 20110220
  4. ESCITALOPRAM OXALATE [Suspect]
     Indication: ANXIETY
     Dosage: 5 MG, UNK
     Dates: start: 20110218, end: 20110220
  5. BETASERC [Concomitant]
     Indication: DIZZINESS
     Dosage: 24 MG, BID
  6. VASTAREL [Concomitant]
     Indication: DIZZINESS
     Dosage: 20 MG, BID

REACTIONS (12)
  - ACUTE VESTIBULAR SYNDROME [None]
  - NYSTAGMUS [None]
  - DIZZINESS [None]
  - VERTIGO [None]
  - DYSKINESIA [None]
  - LOSS OF CONSCIOUSNESS [None]
  - ARTERIOSCLEROSIS [None]
  - URINE OUTPUT DECREASED [None]
  - MALAISE [None]
  - VOMITING [None]
  - EPILEPSY [None]
  - FALL [None]
